FAERS Safety Report 10620657 (Version 4)
Quarter: 2015Q1

REPORT INFORMATION
  Report Type: Spontaneous
  Country: JP (occurrence: JP)
  Receive Date: 20141202
  Receipt Date: 20150309
  Transmission Date: 20150720
  Serious: Yes (Life-Threatening, Hospitalization)
  Sender: FDA-Public Use
  Company Number: JP-B.I. PHARMACEUTICALS,INC./RIDGEFIELD-2014-BI-57412NB

PATIENT
  Age: 69 Year
  Sex: Male
  Weight: 60 kg

DRUGS (9)
  1. ISOBIDE [Concomitant]
     Active Substance: ISOSORBIDE
     Indication: CEREBRAL OEDEMA MANAGEMENT
     Dosage: 30 ML
     Route: 048
     Dates: start: 20140814, end: 20140907
  2. TAKEPRON [Concomitant]
     Active Substance: LANSOPRAZOLE
     Indication: PRODUCT USED FOR UNKNOWN INDICATION
     Dosage: 15 MG
     Route: 048
     Dates: start: 20140811, end: 20140916
  3. CALONAL [Concomitant]
     Active Substance: ACETAMINOPHEN
     Indication: PAIN
     Route: 048
     Dates: start: 20140831, end: 20140917
  4. LOPEMIN [Concomitant]
     Active Substance: LOPERAMIDE HYDROCHLORIDE
     Indication: DIARRHOEA
     Route: 048
     Dates: start: 20141115
  5. GILOTRIF [Suspect]
     Active Substance: AFATINIB
     Indication: NON-SMALL CELL LUNG CANCER
     Dosage: 40 MG
     Route: 048
     Dates: start: 20140827, end: 20141117
  6. THIATON [Concomitant]
     Active Substance: TIQUIZIUM BROMIDE
     Indication: ABDOMINAL PAIN
     Route: 048
     Dates: start: 20141115
  7. GLYCYRON [Concomitant]
     Active Substance: AMMONIUM GLYCYRRHIZATE\GLYCINE\METHIONINE
     Indication: HEPATIC FUNCTION ABNORMAL
     Dosage: 6 ANZ
     Route: 048
     Dates: start: 20140831, end: 20141117
  8. MAGLAX [Concomitant]
     Active Substance: MAGNESIUM OXIDE
     Indication: CONSTIPATION
     Dosage: 990 ANZ
     Route: 048
     Dates: start: 20140826, end: 20140903
  9. DECADRON [Concomitant]
     Active Substance: DEXAMETHASONE
     Indication: CEREBRAL OEDEMA MANAGEMENT
     Dosage: 1 MG
     Route: 048
     Dates: start: 20140815, end: 20140916

REACTIONS (10)
  - Acute kidney injury [Recovered/Resolved]
  - Dehydration [Recovered/Resolved]
  - Hypophagia [Recovered/Resolved]
  - Pancreatitis acute [Recovered/Resolved]
  - Alanine aminotransferase increased [Recovered/Resolved]
  - Amylase increased [Recovered/Resolved]
  - Blood creatinine increased [Not Recovered/Not Resolved]
  - Hypokalaemia [Recovered/Resolved]
  - Diarrhoea [Recovered/Resolved]
  - Aspartate aminotransferase increased [Recovered/Resolved]

NARRATIVE: CASE EVENT DATE: 20140831
